FAERS Safety Report 12412949 (Version 2)
Quarter: 2016Q3

REPORT INFORMATION
  Report Type: Spontaneous
  Country: US (occurrence: US)
  Receive Date: 20160527
  Receipt Date: 20160705
  Transmission Date: 20161109
  Serious: No
  Sender: FDA-Public Use
  Company Number: US-ASTRAZENECA-2016SE39159

PATIENT
  Age: 60 Year
  Sex: Male
  Weight: 77.1 kg

DRUGS (4)
  1. BRILINTA [Suspect]
     Active Substance: TICAGRELOR
     Indication: BLADDER CATHETERISATION
     Route: 048
     Dates: start: 20160203
  2. BRILINTA [Suspect]
     Active Substance: TICAGRELOR
     Indication: STENT PLACEMENT
     Route: 048
     Dates: start: 20160203
  3. ASPIRIN. [Concomitant]
     Active Substance: ASPIRIN
     Dates: start: 20160203
  4. BRILINTA [Suspect]
     Active Substance: TICAGRELOR
     Indication: MYOCARDIAL INFARCTION
     Route: 048
     Dates: start: 20160203

REACTIONS (3)
  - Gastrooesophageal reflux disease [Unknown]
  - Hepatic enzyme increased [Recovering/Resolving]
  - Discomfort [Not Recovered/Not Resolved]

NARRATIVE: CASE EVENT DATE: 2016
